FAERS Safety Report 11928658 (Version 1)
Quarter: 2016Q1

REPORT INFORMATION
  Report Type: Spontaneous
  Country: US (occurrence: US)
  Receive Date: 20160119
  Receipt Date: 20160119
  Transmission Date: 20160526
  Serious: Yes (Death, Other)
  Sender: FDA-Public Use
  Company Number: US-BAUSCH-BL-2016-000349

PATIENT
  Age: 68 Year
  Sex: Female

DRUGS (1)
  1. BUPROPION HYDROCHLORIDE. [Suspect]
     Active Substance: BUPROPION HYDROCHLORIDE
     Indication: PRODUCT USED FOR UNKNOWN INDICATION
     Route: 048

REACTIONS (13)
  - Electrocardiogram QT prolonged [Unknown]
  - Depressed level of consciousness [Unknown]
  - Ascites [Unknown]
  - Electrocardiogram ST segment elevation [Unknown]
  - Completed suicide [Fatal]
  - Pericardial effusion [Unknown]
  - Hypotension [Unknown]
  - Electrocardiogram QRS complex prolonged [Unknown]
  - Pleural effusion [Unknown]
  - Cardiac arrest [Fatal]
  - Pulmonary oedema [Unknown]
  - Seizure [Unknown]
  - Overdose [Unknown]
